FAERS Safety Report 8835621 (Version 2)
Quarter: 2012Q4

REPORT INFORMATION
  Report Type: 
  Country: FR (occurrence: FR)
  Receive Date: 20121011
  Receipt Date: 20121022
  Transmission Date: 20130627
  Serious: Yes (Hospitalization, Congenital Anomaly)
  Sender: FDA-Public Use
  Company Number: FR-JNJFOC-20121001029

PATIENT
  Age: 0 Year
  Sex: Female
  Weight: 2.28 kg

DRUGS (9)
  1. RISPERDAL [Suspect]
     Indication: FOETAL EXPOSURE DURING PREGNANCY
     Route: 064
     Dates: start: 20120630, end: 20120725
  2. LARGACTIL [Suspect]
     Indication: FOETAL EXPOSURE DURING PREGNANCY
     Route: 064
     Dates: end: 20120725
  3. LARGACTIL [Suspect]
     Indication: FOETAL EXPOSURE DURING PREGNANCY
     Route: 064
     Dates: start: 20120725, end: 20120807
  4. LEPTICUR [Suspect]
     Indication: FOETAL EXPOSURE DURING PREGNANCY
     Route: 064
     Dates: start: 20120630, end: 20120725
  5. LOXAPAC [Suspect]
     Indication: FOETAL EXPOSURE DURING PREGNANCY
     Route: 064
     Dates: start: 20120725, end: 20120807
  6. THERALENE [Suspect]
     Indication: FOETAL EXPOSURE DURING PREGNANCY
     Route: 064
     Dates: start: 20120725, end: 20120807
  7. ZYPREXA [Suspect]
     Indication: FOETAL EXPOSURE DURING PREGNANCY
     Route: 064
     Dates: start: 20120725, end: 20120807
  8. SERESTA [Suspect]
     Indication: FOETAL EXPOSURE DURING PREGNANCY
     Route: 064
     Dates: start: 20120725, end: 20120807
  9. LITHIUM [Concomitant]
     Indication: FOETAL EXPOSURE DURING PREGNANCY
     Route: 064
     Dates: start: 201208, end: 201208

REACTIONS (5)
  - Sedation [Recovering/Resolving]
  - Feeding disorder neonatal [Recovering/Resolving]
  - Gastrointestinal motility disorder [Recovering/Resolving]
  - Constipation [Recovering/Resolving]
  - Hypotonia [Recovering/Resolving]
